FAERS Safety Report 24943921 (Version 5)
Quarter: 2025Q2

REPORT INFORMATION
  Report Type: Spontaneous
  Country: US (occurrence: US)
  Receive Date: 20250207
  Receipt Date: 20250513
  Transmission Date: 20250716
  Serious: Yes (Other)
  Sender: PFIZER
  Company Number: US-PFIZER INC-PV202500013997

PATIENT
  Age: 76 Year
  Sex: Female

DRUGS (1)
  1. IBRANCE [Suspect]
     Active Substance: PALBOCICLIB
     Route: 048
     Dates: start: 20250124, end: 20250211

REACTIONS (10)
  - Neutropenia [Unknown]
  - Aphthous ulcer [Recovered/Resolved]
  - Blood glucose increased [Unknown]
  - Chills [Recovered/Resolved]
  - Fatigue [Unknown]
  - Rash [Unknown]
  - Headache [Not Recovered/Not Resolved]
  - Stomatitis [Recovered/Resolved]
  - White blood cell count decreased [Recovered/Resolved]
  - Malaise [Recovered/Resolved]

NARRATIVE: CASE EVENT DATE: 20250131
